FAERS Safety Report 9970144 (Version 1)
Quarter: 2014Q1

REPORT INFORMATION
  Report Type: Report from Study
  Country: US (occurrence: US)
  Receive Date: 20140306
  Receipt Date: 20140306
  Transmission Date: 20141002
  Serious: Yes (Other)
  Sender: FDA-Public Use
  Company Number: PHEH2014US004000

PATIENT
  Age: 44 Year
  Sex: Female

DRUGS (1)
  1. TASIGNA [Suspect]
     Dosage: 150 MG, BID
     Route: 048
     Dates: start: 201307

REACTIONS (3)
  - Uterine cancer [Unknown]
  - Second primary malignancy [Unknown]
  - Neoplasm recurrence [Unknown]
